FAERS Safety Report 5752258-4 (Version None)
Quarter: 2008Q2

REPORT INFORMATION
  Report Type: 
  Country: None (occurrence: None)
  Receive Date: 20080527
  Receipt Date: 20080508
  Transmission Date: 20081010
  Serious: Yes (Other)
  Sender: FDA-Public Use
  Company Number: 2008S1004718

PATIENT
  Age: 87 Year
  Sex: Female
  Weight: 48.9885 kg

DRUGS (15)
  1. FLEET ENEMA (SODIUMP PHOSPHATE) [Suspect]
     Indication: LAXATIVE SUPPORTIVE CARE
     Dosage: 133 ML;X1;RTL
     Dates: start: 20080508, end: 20080508
  2. PROTONIX [Concomitant]
  3. LASIX [Concomitant]
  4. AMANTADINE HCL [Concomitant]
  5. KEPPRA [Concomitant]
  6. COZAAR [Concomitant]
  7. COREG [Concomitant]
  8. FERROUS SULFATE TAB [Concomitant]
  9. MULTIIVITAMINS, PLAIN [Concomitant]
  10. LIPITOR [Concomitant]
  11. DOCUSATE [Concomitant]
  12. KLOR-CON [Concomitant]
  13. FLUOXETINE HCL [Concomitant]
  14. HYDROXYZINE [Concomitant]
  15. KLOR-CON [Concomitant]

REACTIONS (2)
  - DEHYDRATION [None]
  - DRUG INEFFECTIVE [None]
